FAERS Safety Report 8116661-X (Version None)
Quarter: 2012Q1

REPORT INFORMATION
  Report Type: 
  Country: None (occurrence: None)
  Receive Date: 20120206
  Receipt Date: 20120125
  Transmission Date: 20120608
  Serious: Yes (Other)
  Sender: FDA-Public Use
  Company Number: PHHY2012AU002139

PATIENT
  Sex: Male
  Weight: 95 kg

DRUGS (3)
  1. ST. JOHN'S WORT [Concomitant]
     Indication: DEPRESSION
     Dosage: 1 DF, BID
     Dates: start: 20060101
  2. RITALIN [Suspect]
     Dosage: 10 MG, BID
     Dates: start: 20111201, end: 20120105
  3. RITALIN [Suspect]
     Dosage: 5 MG, DAILY
     Route: 048

REACTIONS (5)
  - ABDOMINAL DISTENSION [None]
  - COELIAC DISEASE [None]
  - DIARRHOEA [None]
  - ABDOMINAL PAIN UPPER [None]
  - ABDOMINAL DISCOMFORT [None]
